FAERS Safety Report 7190265-8 (Version None)
Quarter: 2010Q4

REPORT INFORMATION
  Report Type: 
  Country: None (occurrence: None)
  Receive Date: 20101223
  Receipt Date: 20101215
  Transmission Date: 20110411
  Serious: Yes (Other)
  Sender: FDA-Public Use
  Company Number: PHHO2010RU17845

PATIENT
  Sex: Female
  Weight: 82 kg

DRUGS (2)
  1. ICL670A ICL+DISTAB [Suspect]
     Indication: IRON OVERLOAD
     Dosage: 1500 MG, DAILY
     Dates: start: 20100416, end: 20101101
  2. ICL670A ICL+DISTAB [Suspect]
     Dosage: 1500 MG, DAILY
     Dates: start: 20101115

REACTIONS (1)
  - HYPOTHYROIDISM [None]
